FAERS Safety Report 4558637-5 (Version None)
Quarter: 2005Q1

REPORT INFORMATION
  Report Type: 
  Country: None (occurrence: None)
  Receive Date: 20050121
  Receipt Date: 20050111
  Transmission Date: 20050727
  Serious: Yes (Hospitalization)
  Sender: FDA-Public Use
  Company Number: FR-JNJFOC-20050102306

PATIENT
  Age: 25 Year
  Sex: Male

DRUGS (4)
  1. RISPERDAL [Suspect]
     Route: 049
  2. DEPAMIDE [Suspect]
     Route: 049
  3. LEPTICUR [Concomitant]
  4. TERCIAN [Concomitant]

REACTIONS (1)
  - NEUTROPENIA [None]
